FAERS Safety Report 7993990-1 (Version None)
Quarter: 2011Q4

REPORT INFORMATION
  Report Type: 
  Country: None (occurrence: None)
  Receive Date: 20111220
  Receipt Date: 20111208
  Transmission Date: 20120403
  Serious: Yes (Hospitalization, Other)
  Sender: FDA-Public Use
  Company Number: US-BAYER-201039198NA

PATIENT
  Age: 31 Year
  Sex: Female
  Weight: 75.283 kg

DRUGS (6)
  1. YASMIN [Suspect]
     Indication: CONTRACEPTION
     Dosage: UNK
     Route: 048
     Dates: start: 20050101, end: 20090101
  2. DROSPIRENONE AND ETHINYL ESTRADIOL [Suspect]
     Indication: CONTRACEPTION
     Dosage: UNK
     Route: 048
  3. CALCIUM CARBONATE [Concomitant]
     Dosage: UNK
     Route: 048
  4. IBUPROFEN (ADVIL) [Concomitant]
     Route: 048
  5. ACETAMINOPHEN [Concomitant]
     Route: 048
  6. MAGNESIUM HYDROXIDE TAB [Concomitant]

REACTIONS (4)
  - CHOLECYSTITIS ACUTE [None]
  - ALOPECIA [None]
  - GALLBLADDER INJURY [None]
  - BLOOD CHOLESTEROL INCREASED [None]
